FAERS Safety Report 9374100 (Version 2)
Quarter: 2013Q3

REPORT INFORMATION
  Report Type: Spontaneous
  Country: US (occurrence: US)
  Receive Date: 20130628
  Receipt Date: 20130821
  Transmission Date: 20140515
  Serious: Yes (Other)
  Sender: FDA-Public Use
  Company Number: US-BIOGENIDEC-2013BI057158

PATIENT
  Age: 49 Year
  Sex: Female

DRUGS (2)
  1. AVONEX [Suspect]
     Indication: MULTIPLE SCLEROSIS
     Route: 030
     Dates: start: 20080205, end: 20080222
  2. BETASERON [Concomitant]

REACTIONS (3)
  - Transaminases increased [Unknown]
  - Breast cancer [Recovered/Resolved]
  - Muscular weakness [Unknown]
